FAERS Safety Report 21842980 (Version 1)
Quarter: 2023Q1

REPORT INFORMATION
  Report Type: Spontaneous
  Country: US (occurrence: None)
  Receive Date: 20230109
  Receipt Date: 20230109
  Transmission Date: 20230418
  Serious: Yes (Death)
  Sender: FDA-Public Use
  Company Number: None

PATIENT
  Age: 87 Year
  Sex: Male

DRUGS (1)
  1. OCTREOTIDE [Suspect]
     Active Substance: OCTREOTIDE
     Indication: Autonomic neuropathy
     Dosage: OTHER STRENGTH : 100MCG/ML 1ML;?OTHER QUANTITY : 100MCG/ML;?FREQUENCY : 3 TIMES A DAY;?
     Route: 058
     Dates: start: 20220816

REACTIONS (1)
  - Death [None]

NARRATIVE: CASE EVENT DATE: 20230105
